FAERS Safety Report 14926924 (Version 2)
Quarter: 2018Q2

REPORT INFORMATION
  Report Type: Spontaneous
  Country: US (occurrence: US)
  Receive Date: 20180523
  Receipt Date: 20180607
  Transmission Date: 20180711
  Serious: No
  Sender: FDA-Public Use
  Company Number: US-TEVA-2018-US-893758

PATIENT
  Age: 16 Year
  Sex: Male

DRUGS (2)
  1. ACITRETIN. [Suspect]
     Active Substance: ACITRETIN
     Indication: ACNE
     Dates: start: 20180204, end: 20180511
  2. ACITRETIN. [Suspect]
     Active Substance: ACITRETIN
     Indication: HYPERKERATOSIS

REACTIONS (4)
  - Drug prescribing error [Unknown]
  - Skin exfoliation [Recovering/Resolving]
  - Product use in unapproved indication [Unknown]
  - Therapeutic response unexpected [Unknown]

NARRATIVE: CASE EVENT DATE: 201802
